FAERS Safety Report 25943590 (Version 3)
Quarter: 2025Q4

REPORT INFORMATION
  Report Type: Spontaneous
  Country: US (occurrence: US)
  Receive Date: 20251021
  Receipt Date: 20251111
  Transmission Date: 20260118
  Serious: Yes (Other)
  Sender: GLENMARK
  Company Number: US-GLENMARK PHARMACEUTICALS-2025GMK104807

PATIENT

DRUGS (4)
  1. ESTRADIOL [Suspect]
     Active Substance: ESTRADIOL
     Indication: Hormone level abnormal
     Dosage: 1 DOSAGE FORM, (THREE TIMES A WEEK)
     Route: 067
     Dates: start: 20250718
  2. ESTRADIOL [Suspect]
     Active Substance: ESTRADIOL
  3. ROSUVASTATIN [Concomitant]
     Active Substance: ROSUVASTATIN
     Indication: Blood cholesterol abnormal
     Dosage: 10 MILLIGRAM, QD
     Route: 048
  4. LEVOTHYROXINE [Concomitant]
     Active Substance: LEVOTHYROXINE
     Indication: Autoimmune hypothyroidism
     Dosage: HALF TABLET ON 1 DAY AND FULL TABLET FOR 6 DAYS A WEEK
     Route: 048

REACTIONS (3)
  - Rectal haemorrhage [Not Recovered/Not Resolved]
  - Pruritus [Not Recovered/Not Resolved]
  - Product use in unapproved indication [Unknown]
